FAERS Safety Report 8992013 (Version 2)
Quarter: 2013Q1

REPORT INFORMATION
  Report Type: Spontaneous
  Country: US (occurrence: US)
  Receive Date: 20121231
  Receipt Date: 20130122
  Transmission Date: 20140127
  Serious: Yes (Hospitalization, Other)
  Sender: FDA-Public Use
  Company Number: PHEH2012US025562

PATIENT
  Age: 48 Year
  Sex: Female

DRUGS (11)
  1. GILENYA [Suspect]
     Indication: MULTIPLE SCLEROSIS
     Dosage: 0.5 MG, QD
     Route: 048
     Dates: start: 201111
  2. WELLBUTRIN [Concomitant]
     Dosage: 100 MG, UNK
  3. AMPYRA [Concomitant]
     Indication: GAIT DISTURBANCE
     Dosage: 10 MG, Q12H
     Route: 048
     Dates: start: 201008
  4. MULTI-VIT [Concomitant]
     Route: 048
  5. NUVIGIL [Concomitant]
     Dosage: 50 MG, UNK
  6. VITAMIN B12 [Concomitant]
     Dosage: 100 UG, UNK
  7. VITAMIN D3 [Concomitant]
     Dosage: 400 U, UNK
  8. CALCIUM [Concomitant]
     Dosage: UNK UKN, UNK
  9. FISH OIL [Concomitant]
  10. GABAPENTIN [Concomitant]
     Indication: MIGRAINE
     Dosage: 300 MG, TID
     Dates: start: 20100907
  11. BUPRON-SR [Concomitant]
     Indication: DEPRESSION
     Dosage: 150 MG, BID
     Route: 048
     Dates: start: 2007

REACTIONS (3)
  - Inflammatory myofibroblastic tumour [Recovered/Resolved]
  - Chest pain [Unknown]
  - Fall [Recovering/Resolving]
